FAERS Safety Report 8216961-9 (Version None)
Quarter: 2012Q1

REPORT INFORMATION
  Report Type: 
  Country: None (occurrence: None)
  Receive Date: 20120319
  Receipt Date: 20120305
  Transmission Date: 20120608
  Serious: Yes (Other)
  Sender: FDA-Public Use
  Company Number: US-PAR PHARMACEUTICAL, INC-2012SCPR004262

PATIENT

DRUGS (1)
  1. MEGESTROL ACETATE [Suspect]
     Indication: BREAST CANCER
     Dosage: 40 MG, 4 TIMES DAILY FOR } 7 YEARS
     Route: 065

REACTIONS (1)
  - MENINGIOMA [None]
